FAERS Safety Report 7581446-X (Version None)
Quarter: 2011Q2

REPORT INFORMATION
  Report Type: 
  Country: None (occurrence: None)
  Receive Date: 20110629
  Receipt Date: 20110616
  Transmission Date: 20111010
  Serious: Yes (Other)
  Sender: FDA-Public Use
  Company Number: PHHY2011IN54941

PATIENT
  Age: 16 Year
  Sex: Female

DRUGS (1)
  1. DESFERRIOXAMINE MESYLATE [Suspect]
     Indication: THALASSAEMIA BETA
     Dosage: 30.6 MG/KG, DFO

REACTIONS (3)
  - RETINAL VASCULAR DISORDER [None]
  - OPTIC DISCS BLURRED [None]
  - VISUAL ACUITY REDUCED [None]
